FAERS Safety Report 9153536 (Version 1)
Quarter: 2013Q1

REPORT INFORMATION
  Report Type: Spontaneous
  Country: US (occurrence: None)
  Receive Date: 20130204
  Receipt Date: 20130204
  Transmission Date: 20140127
  Serious: Yes (Other)
  Sender: FDA-Public Use
  Company Number: GER/GRE/13/0027685

PATIENT
  Age: 65 Year
  Sex: Female

DRUGS (3)
  1. CLOPIDROGEL [Suspect]
     Indication: PRODUCT USED FOR UNKNOWN INDICATION
  2. ASPIRIN [Suspect]
     Indication: PRODUCT USED FOR UNKNOWN INDICATION
  3. ENOXAPARIN [Suspect]
     Indication: PRODUCT USED FOR UNKNOWN INDICATION
     Route: 058

REACTIONS (7)
  - Atrial fibrillation [None]
  - Pericardial effusion [None]
  - Pericarditis [None]
  - Circulatory collapse [None]
  - Blood pressure systolic decreased [None]
  - Chest pain [None]
  - Body temperature increased [None]
